FAERS Safety Report 15710576 (Version 4)
Quarter: 2022Q3

REPORT INFORMATION
  Report Type: Spontaneous
  Country: US (occurrence: US)
  Receive Date: 20181211
  Receipt Date: 20220804
  Transmission Date: 20221027
  Serious: No
  Sender: FDA-Public Use
  Company Number: US-PFIZER INC-2018161954

PATIENT
  Age: 72 Year
  Sex: Female

DRUGS (1)
  1. XELJANZ XR [Suspect]
     Active Substance: TOFACITINIB CITRATE
     Indication: Rheumatoid arthritis
     Dosage: 11 MG, DAILY
     Route: 048
     Dates: start: 2017

REACTIONS (5)
  - Sinusitis [Recovered/Resolved]
  - Fall [Unknown]
  - Contusion [Unknown]
  - Bone contusion [Unknown]
  - Memory impairment [Unknown]

NARRATIVE: CASE EVENT DATE: 20180101
